FAERS Safety Report 5365664-7 (Version None)
Quarter: 2007Q2

REPORT INFORMATION
  Report Type: 
  Country: None (occurrence: None)
  Receive Date: 20070621
  Receipt Date: 20070615
  Transmission Date: 20071010
  Serious: Yes (Death)
  Sender: FDA-Public Use
  Company Number: US-ELI_LILLY_AND_COMPANY-US200705007882

PATIENT
  Age: 59 Year
  Sex: Female

DRUGS (12)
  1. BYETTA [Suspect]
     Indication: DIABETES MELLITUS NON-INSULIN-DEPENDENT
     Dosage: 5 UG, 2/D
     Route: 058
     Dates: start: 20070313
  2. LEVEMIR [Concomitant]
     Indication: DIABETES MELLITUS NON-INSULIN-DEPENDENT
     Dosage: UNK, UNK
  3. METFORMIN HCL [Concomitant]
     Indication: DIABETES MELLITUS NON-INSULIN-DEPENDENT
     Dosage: 500 MG, 2/D
     Route: 048
     Dates: start: 20070316
  4. GLUCOVANCE [Concomitant]
     Dates: end: 20070313
  5. CARDIAZEM [Concomitant]
     Indication: ATRIAL FIBRILLATION
     Dosage: 120 MG, DAILY (1/D)
     Route: 048
     Dates: start: 20070302
  6. CARDIAZEM [Concomitant]
     Dates: start: 20010101
  7. DIOVAN /SCH/ [Concomitant]
     Indication: HYPERTENSION
     Dosage: 80 MG, EACH EVENING
     Route: 048
     Dates: start: 20051101
  8. ADVAIR DISKUS 100/50 [Concomitant]
     Indication: CHRONIC OBSTRUCTIVE PULMONARY DISEASE
     Dosage: UNK, 2/D
     Route: 055
     Dates: start: 20061001
  9. LASIX [Concomitant]
     Indication: OEDEMA
     Dosage: 40 MG, DAILY (1/D)
     Route: 048
     Dates: start: 20041101
  10. LANOXIN [Concomitant]
     Indication: ATRIAL FIBRILLATION
     Dosage: 0.25 MG, DAILY (1/D)
     Route: 048
     Dates: start: 20040101
  11. ASPIRIN [Concomitant]
     Indication: ATRIAL FIBRILLATION
     Dosage: 81 MG, DAILY (1/D)
     Route: 048
  12. RESTORIL [Concomitant]
     Indication: INSOMNIA
     Dosage: 15 MG, AS NEEDED
     Route: 048

REACTIONS (7)
  - BLOOD GLUCOSE DECREASED [None]
  - BLOOD GLUCOSE INCREASED [None]
  - CHEST PAIN [None]
  - DEATH [None]
  - FATIGUE [None]
  - NAUSEA [None]
  - WEIGHT DECREASED [None]
